FAERS Safety Report 21881975 (Version 2)
Quarter: 2023Q1

REPORT INFORMATION
  Report Type: Report from Study
  Country: US (occurrence: US)
  Receive Date: 20230119
  Receipt Date: 20230329
  Transmission Date: 20230418
  Serious: Yes (Death)
  Sender: FDA-Public Use
  Company Number: US-ABBVIE-4274771

PATIENT
  Sex: Male

DRUGS (4)
  1. DUOPA [Suspect]
     Active Substance: CARBIDOPA\LEVODOPA
     Indication: Parkinson^s disease
     Dosage: 16 HOURS EACH DAY?MORNING DOSE: 9 ML RANGE 8 TO 10 ML, CONTINUOUS DOSE: 2.6 ML/HOUR RANGE 2.5 TO ...
     Route: 050
     Dates: start: 202206
  2. DUOPA [Suspect]
     Active Substance: CARBIDOPA\LEVODOPA
  3. MIDODRINE [Concomitant]
     Active Substance: MIDODRINE
     Indication: Orthostatic hypotension
     Dosage: 15MG, THREE TIMES A DAY
     Route: 048
     Dates: start: 20221220
  4. FLUDROCORTISONE [Concomitant]
     Active Substance: FLUDROCORTISONE
     Indication: Orthostatic hypotension
     Dosage: 0.1MG DAILY
     Route: 048
     Dates: start: 20221220

REACTIONS (3)
  - Myocardial infarction [Fatal]
  - Cardiac death [Fatal]
  - Parkinson^s disease [Fatal]
